FAERS Safety Report 13163709 (Version 1)
Quarter: 2017Q1

REPORT INFORMATION
  Report Type: Spontaneous
  Country: GB (occurrence: GB)
  Receive Date: 20170130
  Receipt Date: 20170130
  Transmission Date: 20170428
  Serious: Yes (Hospitalization, Other)
  Sender: FDA-Public Use
  Company Number: GB-MEDA-2017010089

PATIENT
  Age: 61 Year

DRUGS (5)
  1. ZOLPIDEM [Suspect]
     Active Substance: ZOLPIDEM\ZOLPIDEM TARTRATE
  2. BIPERIDEN [Suspect]
     Active Substance: BIPERIDEN
  3. CLOZAPINE. [Suspect]
     Active Substance: CLOZAPINE
  4. HALOPERIDOL. [Suspect]
     Active Substance: HALOPERIDOL
  5. DIAZEPAM. [Suspect]
     Active Substance: DIAZEPAM

REACTIONS (6)
  - Sinus bradycardia [Recovered/Resolved]
  - Myocardial infarction [Recovered/Resolved]
  - Hypothermia [Unknown]
  - Electrocardiogram QT prolonged [Recovered/Resolved]
  - Electrocardiogram J wave [Recovered/Resolved]
  - Hyporesponsive to stimuli [Unknown]
